FAERS Safety Report 12123954 (Version 2)
Quarter: 2016Q1

REPORT INFORMATION
  Report Type: Spontaneous
  Country: US (occurrence: US)
  Receive Date: 20160229
  Receipt Date: 20160318
  Transmission Date: 20160526
  Serious: No
  Sender: FDA-Public Use
  Company Number: US-PFIZER INC-2016095560

PATIENT
  Age: 10 Year
  Sex: Male
  Weight: 26.76 kg

DRUGS (1)
  1. GENOTROPIN [Suspect]
     Active Substance: SOMATROPIN
     Indication: DWARFISM
     Dosage: 1.2 MG, (6 DAYS PER WEEK)
     Route: 058
     Dates: start: 20150713

REACTIONS (1)
  - Injection site pain [Recovered/Resolved]
